FAERS Safety Report 19473084 (Version 5)
Quarter: 2022Q1

REPORT INFORMATION
  Report Type: Spontaneous
  Country: BE (occurrence: BE)
  Receive Date: 20210629
  Receipt Date: 20220202
  Transmission Date: 20220423
  Serious: Yes (Hospitalization)
  Sender: FDA-Public Use
  Company Number: BE-GLAXOSMITHKLINE-BECH2021EME037294

PATIENT
  Age: 2 Year
  Sex: Male
  Weight: 15.8 kg

DRUGS (2)
  1. ACETAMINOPHEN [Suspect]
     Active Substance: ACETAMINOPHEN
     Indication: Prophylaxis
     Dosage: UNK UNK, TID
     Route: 065
     Dates: start: 20210326
  2. BEXSERO [Suspect]
     Active Substance: NEISSERIA MENINGITIDIS GROUP B FHBP FUSION PROTEIN ANTIGEN\NEISSERIA MENINGITIDIS GROUP B NADA PROTE
     Indication: Prophylaxis
     Dosage: UNK
     Route: 030
     Dates: start: 20210326

REACTIONS (15)
  - Micturition disorder [Unknown]
  - Balance disorder [Recovered/Resolved]
  - Agitation [Recovered/Resolved]
  - Ataxia [Unknown]
  - Poor quality sleep [Unknown]
  - Coordination abnormal [Recovered/Resolved]
  - Dependent personality disorder [Unknown]
  - Sleep talking [Unknown]
  - Listless [Unknown]
  - Restlessness [Recovered/Resolved]
  - Abdominal pain upper [Unknown]
  - Blood lactic acid increased [Unknown]
  - Irritability [Recovered/Resolved]
  - Psychomotor hyperactivity [Unknown]
  - Crying [Unknown]

NARRATIVE: CASE EVENT DATE: 20210328
